FAERS Safety Report 7288099-9 (Version None)
Quarter: 2011Q1

REPORT INFORMATION
  Report Type: 
  Country: None (occurrence: None)
  Receive Date: 20110211
  Receipt Date: 20110209
  Transmission Date: 20110831
  Serious: Yes (Other)
  Sender: FDA-Public Use
  Company Number: IT-PFIZER INC-2010181828

PATIENT
  Age: 64 Year
  Sex: Male

DRUGS (3)
  1. LASIX [Concomitant]
     Dosage: 50 MG
     Route: 048
     Dates: start: 20091201, end: 20100309
  2. SUTENT [Suspect]
     Indication: RENAL CANCER
     Dosage: 50 MG, 1X/DAY
     Route: 048
     Dates: start: 20070212, end: 20101201
  3. ENAPREN [Concomitant]
     Indication: HYPERTENSION
     Dosage: 20 MG
     Route: 048
     Dates: start: 20090901, end: 20100309

REACTIONS (2)
  - CENTRAL NERVOUS SYSTEM LESION [None]
  - HYPERTENSION [None]
